FAERS Safety Report 5009132-0 (Version None)
Quarter: 2006Q2

REPORT INFORMATION
  Report Type: 
  Country: None (occurrence: None)
  Receive Date: 20060519
  Receipt Date: 20060509
  Transmission Date: 20061013
  Serious: Yes (Hospitalization)
  Sender: FDA-Public Use
  Company Number: 2006P1000304

PATIENT
  Age: 69 Year
  Sex: Female

DRUGS (7)
  1. RETEPLASE  ( RETEPLASE ) [Suspect]
     Dosage: 20 IU;X1;IV
     Route: 042
     Dates: start: 20041225, end: 20041225
  2. HEPARIN SODIUM [Concomitant]
  3. MORPHINE SULFATE [Concomitant]
  4. ACETYLSALICYLIC ACID SRT [Concomitant]
  5. METOCLOPRAMIDE [Concomitant]
  6. HYDROCHLORIDE [Concomitant]
  7. ATROPINE [Concomitant]

REACTIONS (2)
  - OEDEMA PERIPHERAL [None]
  - URTICARIA [None]
